FAERS Safety Report 4635243-5 (Version None)
Quarter: 2005Q2

REPORT INFORMATION
  Report Type: 
  Country: None (occurrence: None)
  Receive Date: 20050414
  Receipt Date: 20050404
  Transmission Date: 20051028
  Serious: Yes (Hospitalization)
  Sender: FDA-Public Use
  Company Number: JP-NOVOPROD-243355

PATIENT
  Age: 67 Year
  Sex: Female
  Weight: 68 kg

DRUGS (6)
  1. NOVORAPID CHU FLEXPEN [Suspect]
     Indication: DIABETES MELLITUS NON-INSULIN-DEPENDENT
     Dosage: 34 IU, QD
     Route: 058
     Dates: start: 20030722, end: 20040108
  2. ALINAMIN F [Concomitant]
     Indication: NUTRITIONAL SUPPORT
     Dosage: 75 MG, UNK
     Route: 048
     Dates: start: 20040305
  3. ALASENN [Concomitant]
     Indication: CONSTIPATION
     Dosage: 2 G, QD
     Route: 048
     Dates: start: 20040305
  4. PURSENNIDE [Concomitant]
     Indication: CONSTIPATION
     Dosage: 120 MG, QD
     Route: 048
     Dates: start: 20040305
  5. ADALAT [Concomitant]
     Dosage: 20 MG, QD
     Route: 048
     Dates: start: 20040305
  6. LIPITOR [Concomitant]
     Dosage: 10 MG, QD
     Route: 048
     Dates: start: 20040305

REACTIONS (1)
  - ANAEMIA HAEMOLYTIC AUTOIMMUNE [None]
